FAERS Safety Report 6332396-8 (Version None)
Quarter: 2009Q3

REPORT INFORMATION
  Report Type: 
  Country: None (occurrence: None)
  Receive Date: 20090828
  Receipt Date: 20090818
  Transmission Date: 20100115
  Serious: Yes (Other)
  Sender: FDA-Public Use
  Company Number: MX-PFIZER INC-2009257179

PATIENT
  Age: 30 Year

DRUGS (2)
  1. MARAVIROC [Suspect]
     Indication: HIV INFECTION
     Dosage: 300 MG, 2X/DAY
     Route: 048
     Dates: start: 20050817
  2. COMBIVIR [Concomitant]
     Indication: HIV INFECTION
     Dosage: 150 MG, 2X/DAY

REACTIONS (1)
  - THYROID CANCER [None]
